FAERS Safety Report 21581682 (Version 2)
Quarter: 2022Q4

REPORT INFORMATION
  Report Type: Spontaneous
  Country: CN (occurrence: CN)
  Receive Date: 20221111
  Receipt Date: 20221118
  Transmission Date: 20230113
  Serious: Yes (Death, Hospitalization, Other)
  Sender: FDA-Public Use
  Company Number: CN-ALKEM LABORATORIES LIMITED-US-ALKEM-2022-12203

PATIENT
  Sex: Male

DRUGS (1)
  1. SIROLIMUS [Suspect]
     Active Substance: SIROLIMUS
     Indication: Angiosarcoma
     Dosage: 0.1 MILLIGRAM/KILOGRAM, QD
     Route: 065

REACTIONS (2)
  - Pneumonia [Fatal]
  - Pneumonia mycoplasmal [Fatal]
